FAERS Safety Report 22256617 (Version 1)
Quarter: 2023Q2

REPORT INFORMATION
  Report Type: Spontaneous
  Country: None (occurrence: US)
  Receive Date: 20230426
  Receipt Date: 20230426
  Transmission Date: 20230722
  Serious: Yes (Hospitalization)
  Sender: FDA-Public Use
  Company Number: US-Walmart-2140814

PATIENT
  Age: 84 Year
  Sex: Female

DRUGS (1)
  1. EPSOM SALT [Suspect]
     Active Substance: MAGNESIUM SULFATE
     Route: 048

REACTIONS (5)
  - Dyspnoea [Not Recovered/Not Resolved]
  - Monoplegia [Recovered/Resolved]
  - Dizziness [Recovered/Resolved]
  - Blood potassium decreased [None]
  - Blood magnesium increased [None]
